FAERS Safety Report 4307575-1 (Version None)
Quarter: 2004Q1

REPORT INFORMATION
  Report Type: 
  Country: None (occurrence: None)
  Receive Date: 20040226
  Receipt Date: 20040218
  Transmission Date: 20041129
  Serious: Yes (Death)
  Sender: FDA-Public Use
  Company Number: USA-2003-0011313

PATIENT
  Age: 50 Year
  Sex: Male
  Weight: 147.8 kg

DRUGS (9)
  1. MORPHINE SULFATE [Suspect]
  2. DOXEPIN (DOXEPIN) [Suspect]
  3. OXAZEPAM [Suspect]
  4. VALPROIC ACID [Suspect]
  5. DIAZEPAM [Suspect]
  6. TEMAZEPAM [Suspect]
  7. CODEINE (CODEINE) [Suspect]
  8. CAFFEINE (CAFFEINE) [Suspect]
  9. NICOTINE [Suspect]

REACTIONS (4)
  - ARTERIOSCLEROSIS [None]
  - CARDIOMEGALY [None]
  - COMA [None]
  - DRUG TOXICITY [None]
